FAERS Safety Report 22763369 (Version 12)
Quarter: 2024Q2

REPORT INFORMATION
  Report Type: Report from Study
  Country: US (occurrence: US)
  Receive Date: 20230730
  Receipt Date: 20240412
  Transmission Date: 20240716
  Serious: Yes (Other)
  Sender: FDA-Public Use
  Company Number: US-002147023-NVSC2023US166008

PATIENT
  Sex: Female

DRUGS (2)
  1. KESIMPTA [Suspect]
     Active Substance: OFATUMUMAB
     Indication: Multiple sclerosis
     Dosage: 20 MG / 0.4ML, QMO
     Route: 058
  2. KESIMPTA [Suspect]
     Active Substance: OFATUMUMAB
     Dosage: 20 MG / 0.4ML, QMO
     Route: 058

REACTIONS (8)
  - Multiple sclerosis relapse [Unknown]
  - Lower limb fracture [Unknown]
  - Electric shock sensation [Unknown]
  - Fall [Unknown]
  - Feeling abnormal [Unknown]
  - Injection site bruising [Unknown]
  - Injection site nodule [Unknown]
  - Alopecia [Unknown]
